FAERS Safety Report 17942397 (Version 1)
Quarter: 2020Q2

REPORT INFORMATION
  Report Type: Spontaneous
  Country: US (occurrence: US)
  Receive Date: 20200625
  Receipt Date: 20200625
  Transmission Date: 20200714
  Serious: No
  Sender: FDA-Public Use
  Company Number: US-ACCORD-157348

PATIENT
  Age: 51 Year
  Sex: Female
  Weight: 65.77 kg

DRUGS (3)
  1. MYCOPHENOLATE MOFETIL ACCORD [Suspect]
     Active Substance: MYCOPHENOLATE MOFETIL
     Indication: INFLAMMATION
     Dosage: STRENGTH: 500 MG 3 BID
     Route: 048
     Dates: start: 20190929
  2. METOPROLOL. [Concomitant]
     Active Substance: METOPROLOL
     Dosage: STRENGTH: 50 MG BID
  3. ENALAPRIL [Concomitant]
     Active Substance: ENALAPRIL
     Dosage: STRENGTH: 5 MG (BID)

REACTIONS (5)
  - Retching [Not Recovered/Not Resolved]
  - Abdominal pain [Not Recovered/Not Resolved]
  - Nausea [Not Recovered/Not Resolved]
  - Headache [Not Recovered/Not Resolved]
  - Off label use [Unknown]

NARRATIVE: CASE EVENT DATE: 20191002
